FAERS Safety Report 7152387-7 (Version None)
Quarter: 2010Q4

REPORT INFORMATION
  Report Type: 
  Country: None (occurrence: None)
  Receive Date: 20101209
  Receipt Date: 20101209
  Transmission Date: 20110411
  Serious: Yes (Disabling)
  Sender: FDA-Public Use
  Company Number: None

PATIENT
  Age: 45 Year
  Sex: Male
  Weight: 107.9561 kg

DRUGS (17)
  1. CRESTOR [Suspect]
     Indication: BLOOD CHOLESTEROL INCREASED
     Dosage: 20 MG ONE DAILY ORAL
     Route: 048
     Dates: start: 20070101, end: 20100101
  2. NEXIUM [Concomitant]
  3. DIOVAN [Concomitant]
  4. NORVASC [Concomitant]
  5. LISINOPRIL [Concomitant]
  6. LEXAPROL [Concomitant]
  7. PROZAC [Concomitant]
  8. WELLBUTRIN [Concomitant]
  9. LOVASA [Concomitant]
  10. PLAVIX [Concomitant]
  11. OXYCODONE HCL [Concomitant]
  12. VICOPROFEN WITH ACETAMINOPHIN [Concomitant]
  13. PERCOCET MIXED WITH ACETAMINOPHEN [Concomitant]
  14. COLCHICINE [Concomitant]
  15. VALIUM [Concomitant]
  16. INDOMETHACIN [Concomitant]
  17. NAPROXEN [Concomitant]

REACTIONS (4)
  - ASTHENIA [None]
  - DISABILITY [None]
  - MUSCULOSKELETAL STIFFNESS [None]
  - MYALGIA [None]
